FAERS Safety Report 19867625 (Version 1)
Quarter: 2021Q3

REPORT INFORMATION
  Report Type: Spontaneous
  Country: CN (occurrence: CN)
  Receive Date: 20210922
  Receipt Date: 20210922
  Transmission Date: 20211014
  Serious: Yes (Death, Other)
  Sender: FDA-Public Use
  Company Number: CN-AMGEN-CHNSP2021145442

PATIENT

DRUGS (2)
  1. EVOLOCUMAB [Suspect]
     Active Substance: EVOLOCUMAB
     Indication: ACUTE MYOCARDIAL INFARCTION
     Dosage: 140 MILLIGRAM
     Route: 058
  2. HEPARIN [Concomitant]
     Active Substance: HEPARIN SODIUM

REACTIONS (8)
  - Diabetes mellitus [Unknown]
  - Arrhythmia [Unknown]
  - Cardiac death [Fatal]
  - Myocardial infarction [Unknown]
  - Cardiac failure [Unknown]
  - Angina pectoris [Unknown]
  - Myalgia [Unknown]
  - Injection site reaction [Unknown]
